FAERS Safety Report 9109291 (Version 3)
Quarter: 2013Q2

REPORT INFORMATION
  Report Type: Spontaneous
  Country: CA (occurrence: CA)
  Receive Date: 20130222
  Receipt Date: 20130530
  Transmission Date: 20140414
  Serious: Yes (Hospitalization)
  Sender: FDA-Public Use
  Company Number: CA-ELI_LILLY_AND_COMPANY-CA201302004754

PATIENT
  Age: 91 Year
  Sex: Female

DRUGS (8)
  1. FORTEO [Suspect]
     Indication: OSTEOPOROSIS
     Dosage: 20MCG, ONCE DAILY
     Route: 058
     Dates: start: 20120320, end: 20130428
  2. FORTEO [Suspect]
     Dosage: 20 UG, QD
     Route: 058
     Dates: start: 20130514
  3. LIQUID CALCIUM                     /00751501/ [Concomitant]
  4. VITAMIN D [Concomitant]
  5. TYLENOL                                 /SCH/ [Concomitant]
     Dosage: AS NEEDED
  6. VESICARE [Concomitant]
  7. PMS-DOMPERIDONE [Concomitant]
  8. MALTLEVOL                          /06576601/ [Concomitant]

REACTIONS (6)
  - Gastroenteritis [Recovering/Resolving]
  - Vomiting [Recovered/Resolved]
  - Diarrhoea [Recovered/Resolved]
  - Asthenia [Not Recovered/Not Resolved]
  - Decreased appetite [Not Recovered/Not Resolved]
  - Fatigue [Not Recovered/Not Resolved]
